FAERS Safety Report 8368465-0 (Version None)
Quarter: 2012Q2

REPORT INFORMATION
  Report Type: 
  Country: None (occurrence: None)
  Receive Date: 20120518
  Receipt Date: 20120514
  Transmission Date: 20120825
  Serious: Yes (Other)
  Sender: FDA-Public Use
  Company Number: PHHY2012US041071

PATIENT
  Age: 59 Year
  Sex: Male

DRUGS (3)
  1. CEFEPIME [Suspect]
     Indication: PSEUDOMONAS TEST POSITIVE
  2. LINEZOLID [Concomitant]
  3. VANCOMYCIN [Concomitant]

REACTIONS (20)
  - TACHYCARDIA [None]
  - EOSINOPHILIA [None]
  - RASH ERYTHEMATOUS [None]
  - CONFUSIONAL STATE [None]
  - HYPOTENSION [None]
  - ENTEROCOCCUS TEST POSITIVE [None]
  - ANURIA [None]
  - TUBULOINTERSTITIAL NEPHRITIS [None]
  - RENAL FAILURE [None]
  - DRUG RASH WITH EOSINOPHILIA AND SYSTEMIC SYMPTOMS [None]
  - LEUKOCYTOSIS [None]
  - NEUTROPHILIA [None]
  - PYURIA [None]
  - SOMNOLENCE [None]
  - FACE OEDEMA [None]
  - RASH MACULAR [None]
  - MULTI-ORGAN FAILURE [None]
  - PYREXIA [None]
  - ACIDOSIS [None]
  - ENCEPHALOPATHY [None]
